FAERS Safety Report 15153495 (Version 1)
Quarter: 2018Q3

REPORT INFORMATION
  Report Type: Spontaneous
  Country: US (occurrence: US)
  Receive Date: 20180619
  Receipt Date: 20180619
  Transmission Date: 20181010
  Serious: Yes (Other)
  Sender: FDA-Public Use
  Company Number: None

PATIENT
  Age: 51 Year
  Sex: Female
  Weight: 62.14 kg

DRUGS (3)
  1. VITAMIN D [Concomitant]
     Active Substance: CHOLECALCIFEROL
  2. GINKGO BILOBA [Concomitant]
     Active Substance: GINKGO
  3. CLENPIQ [Suspect]
     Active Substance: ANHYDROUS CITRIC ACID\MAGNESIUM OXIDE\SODIUM PICOSULFATE
     Indication: COLONOSCOPY
     Dosage: ?          QUANTITY:2 DF DOSAGE FORM;?
     Route: 048
     Dates: start: 20180429, end: 20180429

REACTIONS (9)
  - Neck pain [None]
  - Dizziness [None]
  - Nuchal rigidity [None]
  - Vomiting [None]
  - Loss of consciousness [None]
  - Fall [None]
  - Pain [None]
  - Laceration [None]
  - Musculoskeletal stiffness [None]

NARRATIVE: CASE EVENT DATE: 20180429
